FAERS Safety Report 23921804 (Version 3)
Quarter: 2024Q4

REPORT INFORMATION
  Report Type: Spontaneous
  Country: US (occurrence: US)
  Receive Date: 20240530
  Receipt Date: 20241209
  Transmission Date: 20250115
  Serious: No
  Sender: BRISTOL-MYERS SQUIBB COMPANY
  Company Number: US-BRISTOL-MYERS SQUIBB COMPANY-2024-086128

PATIENT
  Age: 54 Year
  Sex: Female

DRUGS (4)
  1. ORENCIA [Suspect]
     Active Substance: ABATACEPT
     Indication: Arthropathy
     Route: 058
     Dates: start: 202401
  2. ORENCIA [Suspect]
     Active Substance: ABATACEPT
     Indication: Rheumatoid arthritis
     Dosage: STRENGTH:250MG/VL
     Route: 042
     Dates: start: 202401
  3. DUPIXENT [Concomitant]
     Active Substance: DUPILUMAB
     Indication: Asthma
  4. DUPIXENT [Concomitant]
     Active Substance: DUPILUMAB
     Indication: Seasonal allergy

REACTIONS (4)
  - Joint swelling [Unknown]
  - Arthralgia [Unknown]
  - Therapeutic response decreased [Unknown]
  - Upper respiratory tract infection [Unknown]
